FAERS Safety Report 5472158-7 (Version None)
Quarter: 2007Q3

REPORT INFORMATION
  Report Type: 
  Country: None (occurrence: None)
  Receive Date: 20070928
  Receipt Date: 20070919
  Transmission Date: 20080115
  Serious: Yes (Hospitalization)
  Sender: FDA-Public Use
  Company Number: JP-ABBOTT-06P-087-0348481-00

PATIENT
  Sex: Male

DRUGS (27)
  1. KALETRA [Suspect]
     Indication: HIV INFECTION
     Route: 048
     Dates: start: 20050405, end: 20050616
  2. NORVIR [Suspect]
     Indication: HIV INFECTION
     Route: 048
     Dates: start: 20050926, end: 20060518
  3. NORVIR [Suspect]
     Route: 048
     Dates: start: 20060519, end: 20060609
  4. STAVUDINE [Suspect]
     Indication: HIV INFECTION
     Route: 048
     Dates: start: 20050405, end: 20050621
  5. ABACAVIR [Suspect]
     Indication: HIV INFECTION
     Route: 048
     Dates: start: 20050405, end: 20050621
  6. ATAZANAVIR SULFATE [Suspect]
     Indication: HIV INFECTION
     Route: 048
     Dates: start: 20050701, end: 20050719
  7. ATAZANAVIR SULFATE [Suspect]
     Route: 048
     Dates: start: 20050926, end: 20060518
  8. LAMIVUDINE [Suspect]
     Indication: HIV INFECTION
     Route: 048
     Dates: start: 20050701, end: 20050719
  9. LAMIVUDINE [Suspect]
     Route: 048
     Dates: start: 20050926
  10. TENOFOVIR DISOPROXIL FUMARATE [Suspect]
     Indication: HIV INFECTION
     Route: 048
     Dates: start: 20050701, end: 20050719
  11. TENOFOVIR DISOPROXIL FUMARATE [Suspect]
     Route: 048
     Dates: start: 20050926
  12. FOSAMPRENAVIR [Suspect]
     Indication: HIV INFECTION
     Route: 048
     Dates: start: 20060519, end: 20060608
  13. FOSAMPRENAVIR [Suspect]
     Route: 048
     Dates: start: 20060609
  14. ISONIAZID [Concomitant]
     Indication: TUBERCULOSIS
     Route: 048
     Dates: start: 20041228, end: 20050621
  15. ISONIAZID [Concomitant]
     Route: 048
     Dates: start: 20050819, end: 20060113
  16. ETHANBUTOL [Concomitant]
     Indication: TUBERCULOSIS
     Route: 048
     Dates: start: 20041228, end: 20050621
  17. ETHANBUTOL [Concomitant]
     Route: 048
     Dates: start: 20050819, end: 20060113
  18. RIFABUTIN [Concomitant]
     Indication: TUBERCULOSIS
     Dates: start: 20050329, end: 20050621
  19. RIFABUTIN [Concomitant]
     Route: 048
     Dates: start: 20050916, end: 20050925
  20. RIFABUTIN [Concomitant]
     Route: 048
     Dates: start: 20050926, end: 20060113
  21. PYRIDOXAL PHOSPHATE [Concomitant]
     Indication: TUBERCULOSIS
     Dates: start: 20050112, end: 20050121
  22. PYRIDOXAL PHOSPHATE [Concomitant]
     Dates: start: 20050819, end: 20060113
  23. PENTAMIDINE ISETHIONATE [Concomitant]
     Indication: ANTIFUNGAL PROPHYLAXIS
     Route: 042
     Dates: start: 20050114, end: 20050516
  24. BACTRIM [Concomitant]
     Indication: ANTIFUNGAL PROPHYLAXIS
     Route: 048
     Dates: start: 20050526, end: 20050621
  25. BACTRIM [Concomitant]
     Route: 048
     Dates: start: 20050701, end: 20050719
  26. BACTRIM [Concomitant]
     Route: 048
     Dates: start: 20050819
  27. FEXOFENADINE HYDROCHLORIDE [Concomitant]
     Indication: ECZEMA
     Route: 048
     Dates: start: 20050220, end: 20050621

REACTIONS (9)
  - ANOREXIA [None]
  - BLOOD BILIRUBIN INCREASED [None]
  - DIARRHOEA [None]
  - HEPATITIS B [None]
  - IMMUNE RECONSTITUTION SYNDROME [None]
  - KAPOSI'S SARCOMA [None]
  - NAUSEA [None]
  - NIGHTMARE [None]
  - VOMITING [None]
